APPROVED DRUG PRODUCT: LAMIVUDINE
Active Ingredient: LAMIVUDINE
Strength: 10MG/ML
Dosage Form/Route: SOLUTION;ORAL
Application: A077695 | Product #001 | TE Code: AA
Applicant: AUROBINDO PHARMA LTD
Approved: Nov 21, 2016 | RLD: No | RS: No | Type: RX